FAERS Safety Report 17449299 (Version 2)
Quarter: 2020Q1

REPORT INFORMATION
  Report Type: Spontaneous
  Country: US (occurrence: US)
  Receive Date: 20200224
  Receipt Date: 20200313
  Transmission Date: 20200409
  Serious: No
  Sender: FDA-Public Use
  Company Number: US-GLAXOSMITHKLINE-US2020AMR028831

PATIENT
  Sex: Female

DRUGS (5)
  1. BIOTIN [Suspect]
     Active Substance: BIOTIN
     Indication: GINGIVAL PAIN
  2. BIOTIN [Suspect]
     Active Substance: BIOTIN
     Indication: ORAL PAIN
     Dosage: UNK
  3. BIOTIN [Suspect]
     Active Substance: BIOTIN
     Indication: STOMATITIS
  4. ZEJULA [Suspect]
     Active Substance: NIRAPARIB
     Indication: OVARIAN CANCER
     Dosage: 200 MG, QD
     Route: 048
     Dates: start: 20180316
  5. BIOTIN [Suspect]
     Active Substance: BIOTIN
     Indication: MOUTH ULCERATION

REACTIONS (9)
  - Tooth infection [Unknown]
  - Back pain [Not Recovered/Not Resolved]
  - Mouth ulceration [Unknown]
  - Stomatitis [Unknown]
  - Therapeutic product effect incomplete [Unknown]
  - Headache [Not Recovered/Not Resolved]
  - Gingival pain [Unknown]
  - Tooth disorder [Unknown]
  - Oral pain [Unknown]
